APPROVED DRUG PRODUCT: DIPYRIDAMOLE
Active Ingredient: DIPYRIDAMOLE
Strength: 50MG
Dosage Form/Route: TABLET;ORAL
Application: A087160 | Product #001
Applicant: WATSON LABORATORIES INC
Approved: Jun 7, 1996 | RLD: No | RS: No | Type: DISCN